FAERS Safety Report 15366872 (Version 1)
Quarter: 2018Q3

REPORT INFORMATION
  Report Type: Spontaneous
  Country: US (occurrence: US)
  Receive Date: 20180902
  Receipt Date: 20180902
  Transmission Date: 20181010
  Serious: Yes (Hospitalization, Disabling)
  Sender: FDA-Public Use
  Company Number: None

PATIENT
  Age: 55 Year
  Sex: Female
  Weight: 72 kg

DRUGS (1)
  1. CIPROFLOXACIN. [Suspect]
     Active Substance: CIPROFLOXACIN
     Indication: DIVERTICULITIS
     Dates: start: 20180829, end: 20180830

REACTIONS (9)
  - Blister [None]
  - Skin burning sensation [None]
  - Burning sensation [None]
  - Feeling abnormal [None]
  - Paraesthesia [None]
  - Anxiety [None]
  - Visual impairment [None]
  - Neck pain [None]
  - Depression [None]

NARRATIVE: CASE EVENT DATE: 20180830
